FAERS Safety Report 23608737 (Version 1)
Quarter: 2024Q1

REPORT INFORMATION
  Report Type: Spontaneous
  Country: ZA (occurrence: ZA)
  Receive Date: 20240308
  Receipt Date: 20240308
  Transmission Date: 20240410
  Serious: Yes (Hospitalization, Other)
  Sender: FDA-Public Use
  Company Number: ZA-SERVIER-S24002053

PATIENT
  Age: 46 Year
  Sex: Male

DRUGS (9)
  1. IVABRADINE HYDROCHLORIDE [Suspect]
     Active Substance: IVABRADINE HYDROCHLORIDE
     Indication: Hypertension
     Dosage: 7.5 MG, QD
     Route: 048
  2. ATORVASTATIN [Concomitant]
     Active Substance: ATORVASTATIN
     Indication: Blood cholesterol
     Dosage: 40 MG, QD, AT NIGHT
     Route: 048
  3. METFORMIN HYDROCHLORIDE\VILDAGLIPTIN [Concomitant]
     Active Substance: METFORMIN HYDROCHLORIDE\VILDAGLIPTIN
     Indication: Diabetes mellitus
     Dosage: 1 DF, BID
     Route: 048
  4. CLOPIDOGREL [Concomitant]
     Active Substance: CLOPIDOGREL BISULFATE
     Indication: Anticoagulant therapy
     Dosage: 75 MG, QD
     Route: 048
  5. Spiractin [Concomitant]
     Indication: Hypertension
     Dosage: 25 MG, BID
     Route: 048
  6. Pharmapress [Concomitant]
     Indication: Hypertension
     Dosage: 0.5 DF, QD
     Route: 048
  7. JARDIANCE [Concomitant]
     Active Substance: EMPAGLIFLOZIN
     Indication: Diabetes mellitus
     Dosage: 10 MG, QD
     Route: 048
  8. FUROSEMIDE [Concomitant]
     Active Substance: FUROSEMIDE
     Indication: Hypertension
     Dosage: 40 MG AS DIRECTED
     Route: 048
  9. DOFETILIDE [Concomitant]
     Active Substance: DOFETILIDE
     Indication: Hypertension
     Dosage: 3 DF, BID
     Route: 048

REACTIONS (1)
  - Cardiac failure [Unknown]
